FAERS Safety Report 9320068 (Version 2)
Quarter: 2013Q4

REPORT INFORMATION
  Report Type: Spontaneous
  Country: IT (occurrence: IT)
  Receive Date: 20130530
  Receipt Date: 20131031
  Transmission Date: 20140711
  Serious: Yes (Hospitalization, Other)
  Sender: FDA-Public Use
  Company Number: IT-PFIZER INC-2013162641

PATIENT
  Age: 84 Year
  Sex: 0
  Weight: 96 kg

DRUGS (8)
  1. TORVAST [Suspect]
     Indication: ARTERIOSCLEROSIS
     Dosage: 40 MG, DAILY
     Route: 048
     Dates: start: 20130515, end: 20130518
  2. NORVASC [Concomitant]
  3. ANTRA [Concomitant]
  4. CARDIOASPIRIN [Concomitant]
  5. CEFAMEZIN ^PHARMACIA-UPJOHN^ [Concomitant]
  6. LORTAAN [Concomitant]
  7. CLEXANE [Concomitant]
  8. ZYLORIC [Concomitant]

REACTIONS (4)
  - Anaemia [Unknown]
  - Myalgia [Unknown]
  - Rhabdomyolysis [Unknown]
  - Renal failure [Unknown]
